FAERS Safety Report 9418686 (Version 1)
Quarter: 2013Q3

REPORT INFORMATION
  Report Type: Spontaneous
  Country: GB (occurrence: GB)
  Receive Date: 20130725
  Receipt Date: 20130725
  Transmission Date: 20140515
  Serious: Yes (Hospitalization, Other)
  Sender: FDA-Public Use
  Company Number: GB-ACCORD-018590

PATIENT
  Age: 44 Year
  Sex: Female
  Weight: 53 kg

DRUGS (9)
  1. LEVOBUPIVACAINE [Concomitant]
     Indication: ANALGESIC THERAPY
  2. ONDANSETRON [Suspect]
     Indication: ANTIEMETIC SUPPORTIVE CARE
     Route: 042
  3. TRAMADOL [Suspect]
     Indication: HEADACHE
     Route: 048
  4. OXYGEN [Concomitant]
     Indication: ANAESTHETIC PREMEDICATION
  5. PROPOFOL [Concomitant]
     Indication: INDUCTION OF ANAESTHESIA
     Route: 042
  6. PARACETAMOL [Concomitant]
     Indication: UMBILICAL HERNIA
  7. FENTANYL [Concomitant]
     Indication: INDUCTION OF ANAESTHESIA
  8. IBUPROFEN [Concomitant]
     Indication: UMBILICAL HERNIA
  9. SEVOFLURANE [Concomitant]
     Indication: ANAESTHETIC PREMEDICATION

REACTIONS (2)
  - Procedural headache [Unknown]
  - Pruritus [Not Recovered/Not Resolved]
